FAERS Safety Report 22218692 (Version 1)
Quarter: 2023Q2

REPORT INFORMATION
  Report Type: Spontaneous
  Country: JP (occurrence: JP)
  Receive Date: 20230417
  Receipt Date: 20230417
  Transmission Date: 20230721
  Serious: Yes (Other)
  Sender: FDA-Public Use
  Company Number: JP-ARBOR PHARMACEUTICALS, LLC-JP-2023ARB003173

PATIENT
  Sex: Female

DRUGS (14)
  1. GABAPENTIN ENACARBIL [Suspect]
     Active Substance: GABAPENTIN ENACARBIL
     Indication: Restless legs syndrome
     Dosage: 300 MG/DAY, UNKNOWN FREQUENCY
     Route: 048
  2. GABAPENTIN ENACARBIL [Suspect]
     Active Substance: GABAPENTIN ENACARBIL
     Dosage: 600 MG/DAY, UNKNOWN FREQUENCY
     Route: 048
  3. GABAPENTIN ENACARBIL [Suspect]
     Active Substance: GABAPENTIN ENACARBIL
     Dosage: 300 MG, ONCE DAILY, DAYTIME
     Route: 048
  4. GABAPENTIN ENACARBIL [Suspect]
     Active Substance: GABAPENTIN ENACARBIL
     Dosage: 600 MG/DAY, UNKNOWN FREQUENCY
     Route: 048
  5. GABAPENTIN ENACARBIL [Suspect]
     Active Substance: GABAPENTIN ENACARBIL
     Dosage: 300 MG, ONCE DAILY, BEFORE GOING TO BED
     Route: 048
  6. GABAPENTIN ENACARBIL [Suspect]
     Active Substance: GABAPENTIN ENACARBIL
     Dosage: UNK; UNKNOWN
  7. REQUIP [Suspect]
     Active Substance: ROPINIROLE HYDROCHLORIDE
     Indication: Parkinson^s disease
     Dosage: UNK UNK, UNKNOWN FREQUENCY
     Route: 048
  8. REQUIP [Suspect]
     Active Substance: ROPINIROLE HYDROCHLORIDE
     Dosage: UNK UNK, UNKNOWN FREQUENCY
     Route: 048
  9. REQUIP [Suspect]
     Active Substance: ROPINIROLE HYDROCHLORIDE
     Dosage: UNK UNK, UNKNOWN FREQUENCY
     Route: 048
  10. REQUIP [Suspect]
     Active Substance: ROPINIROLE HYDROCHLORIDE
     Dosage: 0.25 MG, TWICE DAILY, 1 TABLET AT DINNER, 1 TABLET BEFORE GOING TO BED
     Route: 048
  11. CLONAZEPAM [Concomitant]
     Active Substance: CLONAZEPAM
     Indication: Restless legs syndrome
     Dosage: 4 DF, DAILY
  12. PREGABALIN [Concomitant]
     Active Substance: PREGABALIN
     Indication: Product used for unknown indication
     Dosage: 4 DF, 1 TABLET AT MORNING AND 3 TABLETS AT EVENING
  13. PRAMIPEXOLE DIHYDROCHLORIDE [Concomitant]
     Active Substance: PRAMIPEXOLE DIHYDROCHLORIDE
     Indication: Product used for unknown indication
     Dosage: 2 DF
  14. PRAMIPEXOLE [Concomitant]
     Active Substance: PRAMIPEXOLE
     Indication: Product used for unknown indication
     Dosage: 2 DF, AT NIGHT

REACTIONS (10)
  - Immobile [Unknown]
  - Vomiting [Unknown]
  - Urinary incontinence [Unknown]
  - Discomfort [Unknown]
  - Abdominal discomfort [Unknown]
  - Iron deficiency [Unknown]
  - Urine odour abnormal [Unknown]
  - Abnormal faeces [Unknown]
  - Drug ineffective [Unknown]
  - Product use issue [Unknown]
